FAERS Safety Report 21328166 (Version 1)
Quarter: 2022Q3

REPORT INFORMATION
  Report Type: Spontaneous
  Country: US (occurrence: US)
  Receive Date: 20220913
  Receipt Date: 20220913
  Transmission Date: 20221026
  Serious: Yes (Hospitalization, Disabling, Other)
  Sender: FDA-Public Use
  Company Number: US-009507513-1208USA008535

PATIENT
  Sex: Female

DRUGS (11)
  1. FOSAMAX [Suspect]
     Active Substance: ALENDRONATE SODIUM
     Indication: Osteoporosis
     Dosage: 70 MG, UNK
     Route: 048
     Dates: start: 2000, end: 2010
  2. FOLIC ACID [Concomitant]
     Active Substance: FOLIC ACID
     Dosage: 1 MILLIGRAM, DAILY
  3. NASONEX [Concomitant]
     Active Substance: MOMETASONE FUROATE
     Dosage: ONE SPRAY IN BOTH NOSTRILS DAILY
     Route: 045
  4. CEFAZOLIN [Concomitant]
     Active Substance: CEFAZOLIN
     Dosage: UNK
  5. K-DUR [Concomitant]
     Active Substance: POTASSIUM CHLORIDE
     Dosage: 20 MILLIEQUIVALENT, QD
  6. LORATADINE [Concomitant]
     Active Substance: LORATADINE
     Dosage: 10 MG DAILY
  7. PROVENTIL [Concomitant]
     Active Substance: ALBUTEROL
     Dosage: TWO PUFFS Q 6H P.R.N.
  8. PRAVACHOL [Concomitant]
     Active Substance: PRAVASTATIN SODIUM
     Dosage: 40 MG Q H.S.
  9. SENNA TABS [Concomitant]
     Active Substance: SENNOSIDES A AND B
     Dosage: TWO TABLETS B.I.D.
     Route: 048
  10. VITAMINS NOS [Concomitant]
     Active Substance: VITAMINS
     Dosage: 1 TABLET DAILY
     Route: 048
  11. VICODIN [Concomitant]
     Active Substance: ACETAMINOPHEN\HYDROCODONE BITARTRATE
     Indication: Pain
     Dosage: UNK

REACTIONS (14)
  - Anaemia postoperative [Unknown]
  - Femur fracture [Unknown]
  - Anaemia postoperative [Recovering/Resolving]
  - Cardiac failure congestive [Unknown]
  - Deep vein thrombosis [Unknown]
  - Hysterectomy [Unknown]
  - Angiopathy [Unknown]
  - Adverse event [Unknown]
  - Wound dehiscence [Recovered/Resolved]
  - Coronary artery disease [Unknown]
  - Anxiety disorder [Unknown]
  - Osteoarthritis [Unknown]
  - Wound dehiscence [Recovered/Resolved]
  - Pyrexia [Unknown]

NARRATIVE: CASE EVENT DATE: 20090101
